FAERS Safety Report 14476004 (Version 1)
Quarter: 2018Q1

REPORT INFORMATION
  Report Type: Report from Study
  Country: DE (occurrence: DE)
  Receive Date: 20180201
  Receipt Date: 20180201
  Transmission Date: 20180509
  Serious: Yes (Other)
  Sender: FDA-Public Use
  Company Number: PHHY2014DE083452

PATIENT
  Age: 49 Year
  Sex: Female

DRUGS (1)
  1. GILENYA [Suspect]
     Active Substance: FINGOLIMOD HYDROCHLORIDE
     Indication: RELAPSING-REMITTING MULTIPLE SCLEROSIS
     Dosage: 0.5 MG, QD
     Route: 048
     Dates: start: 20140121, end: 20160705

REACTIONS (20)
  - Lung infection [Recovered/Resolved]
  - Infection [Unknown]
  - Neutrophil count decreased [Unknown]
  - Haematocrit increased [Unknown]
  - Blood alkaline phosphatase increased [Unknown]
  - Gamma-glutamyltransferase increased [Recovered/Resolved]
  - Anxiety disorder [Not Recovered/Not Resolved]
  - Nausea [Recovered/Resolved]
  - Lipoedema [Recovered/Resolved]
  - Aspartate aminotransferase increased [Unknown]
  - Depression [Unknown]
  - Alanine aminotransferase increased [Unknown]
  - Gamma-glutamyltransferase increased [Recovered/Resolved]
  - White blood cell count decreased [Unknown]
  - Genital herpes zoster [Unknown]
  - Lymphopenia [Unknown]
  - Hypertension [Recovered/Resolved]
  - Blood cholesterol increased [Unknown]
  - Hypertonia [Recovered/Resolved]
  - Herpes virus infection [Recovered/Resolved]

NARRATIVE: CASE EVENT DATE: 20140221
